FAERS Safety Report 18710715 (Version 1)
Quarter: 2021Q1

REPORT INFORMATION
  Report Type: Spontaneous
  Country: CA (occurrence: CA)
  Receive Date: 20210107
  Receipt Date: 20210107
  Transmission Date: 20210419
  Serious: Yes (Other)
  Sender: FDA-Public Use
  Company Number: CA-JNJFOC-20210104971

PATIENT
  Sex: Female

DRUGS (2)
  1. INVOKANA [Suspect]
     Active Substance: CANAGLIFLOZIN
     Indication: PRODUCT USED FOR UNKNOWN INDICATION
     Route: 048
  2. GLICLAZIDE [Concomitant]
     Active Substance: GLICLAZIDE

REACTIONS (12)
  - Cerebrovascular accident [Unknown]
  - Fungal infection [Unknown]
  - Cough [Unknown]
  - Abdominal discomfort [Unknown]
  - Thirst [Unknown]
  - Myocardial infarction [Unknown]
  - Fournier^s gangrene [Unknown]
  - Dysuria [Unknown]
  - Feeling of body temperature change [Unknown]
  - Fatigue [Unknown]
  - Headache [Unknown]
  - Ear pain [Unknown]
